FAERS Safety Report 14364976 (Version 1)
Quarter: 2018Q1

REPORT INFORMATION
  Report Type: Spontaneous
  Country: US (occurrence: US)
  Receive Date: 20180108
  Receipt Date: 20180108
  Transmission Date: 20180509
  Serious: Yes (Other)
  Sender: FDA-Public Use
  Company Number: US-ROCHE-1898051

PATIENT
  Age: 2 Day
  Sex: Female
  Weight: 3.1 kg

DRUGS (8)
  1. CEFOTAXIME [Concomitant]
     Active Substance: CEFOTAXIME SODIUM
  2. DOBUTAMINE [Concomitant]
     Active Substance: DOBUTAMINE\DOBUTAMINE HYDROCHLORIDE
     Route: 065
  3. HEPARIN SODIUM. [Concomitant]
     Active Substance: HEPARIN SODIUM
     Dosage: DOSE: 100 UNITS/KG WITH A CONTINUOUS INFUSION OF 15-25 UNITS/KG/H TO MAINTAIN ACTIVATED CLOTTING TIM
     Route: 065
  4. DOPAMINE [Concomitant]
     Active Substance: DOPAMINE\DOPAMINE HYDROCHLORIDE
     Route: 065
  5. EPINEPHRINE. [Concomitant]
     Active Substance: EPINEPHRINE
     Route: 065
  6. ALTEPLASE. [Suspect]
     Active Substance: ALTEPLASE
     Indication: THROMBOLYSIS
     Dosage: DOSE: 0.48 MG/KG WAS INFUSED OVER 20 MINUTES
     Route: 042
  7. AMPICILLIN [Concomitant]
     Active Substance: AMPICILLIN
  8. AMINOPHYLLINE. [Concomitant]
     Active Substance: AMINOPHYLLINE
     Route: 042

REACTIONS (1)
  - Cerebral haemorrhage [Recovered/Resolved]
